FAERS Safety Report 20618235 (Version 1)
Quarter: 2022Q1

REPORT INFORMATION
  Report Type: Spontaneous
  Country: CA (occurrence: None)
  Receive Date: 20220321
  Receipt Date: 20220321
  Transmission Date: 20220424
  Serious: Yes (Other)
  Sender: FDA-Public Use
  Company Number: CA-ROCHE-3044343

PATIENT
  Age: 50 Year
  Sex: Male

DRUGS (1)
  1. OCREVUS [Suspect]
     Active Substance: OCRELIZUMAB
     Indication: Multiple sclerosis
     Route: 042

REACTIONS (8)
  - Abdominal pain upper [Unknown]
  - Anaesthesia oral [Unknown]
  - Feeding disorder [Unknown]
  - Multiple sclerosis [Unknown]
  - Pain in extremity [Unknown]
  - Paraesthesia oral [Unknown]
  - Vision blurred [Unknown]
  - Weight decreased [Unknown]
